FAERS Safety Report 23066540 (Version 1)
Quarter: 2023Q4

REPORT INFORMATION
  Report Type: Spontaneous
  Country: US (occurrence: US)
  Receive Date: 20231015
  Receipt Date: 20231015
  Transmission Date: 20240110
  Serious: No
  Sender: FDA-Public Use
  Company Number: US-AMGEN-USASP2023181737

PATIENT

DRUGS (2)
  1. BEVACIZUMAB [Suspect]
     Active Substance: BEVACIZUMAB
     Indication: Ovarian cancer
     Dosage: UNK
     Route: 065
  2. MIRVETUXIMAB SORAVTANSINE [Concomitant]
     Active Substance: MIRVETUXIMAB SORAVTANSINE
     Dosage: 6 MILLIGRAM/KG
     Route: 042

REACTIONS (4)
  - Vision blurred [Unknown]
  - Keratopathy [Unknown]
  - Nausea [Unknown]
  - Eye disorder [Unknown]
